FAERS Safety Report 6099956-3 (Version None)
Quarter: 2009Q1

REPORT INFORMATION
  Report Type: 
  Country: None (occurrence: None)
  Receive Date: 20090303
  Receipt Date: 20090220
  Transmission Date: 20090719
  Serious: Yes (Other)
  Sender: FDA-Public Use
  Company Number: GXKR2009NL02386

PATIENT
  Sex: Female

DRUGS (7)
  1. ACENOCOUMAROL (NGX) [Suspect]
     Dosage: ACCORDING SCHEMA: APPR. 5 TBL/DAY
     Route: 048
  2. SOTALOL HCL [Suspect]
     Dosage: 1 DF, TID
     Route: 048
  3. DIOVAN HCT [Suspect]
     Route: 048
  4. OMEPRAZOLE [Concomitant]
     Dosage: 1 DF, QD
     Route: 065
  5. HYDROQUININE [Concomitant]
     Dosage: 1 DF, QD
     Route: 065
  6. OXAZEPAM [Concomitant]
     Dosage: 0.5 DF, QD
     Route: 065
  7. LACTULOSE [Concomitant]
     Dosage: 1 DF, QD
     Route: 065

REACTIONS (7)
  - ALOPECIA [None]
  - CARDIAC FAILURE [None]
  - DEAFNESS [None]
  - DIZZINESS [None]
  - HEADACHE [None]
  - NAUSEA [None]
  - TINNITUS [None]
